FAERS Safety Report 5940322-6 (Version None)
Quarter: 2008Q4

REPORT INFORMATION
  Report Type: 
  Country: None (occurrence: None)
  Receive Date: 20081104
  Receipt Date: 20081030
  Transmission Date: 20090506
  Serious: Yes (Other)
  Sender: FDA-Public Use
  Company Number: B0540207A

PATIENT
  Age: 66 Year
  Sex: Male

DRUGS (7)
  1. ARIXTRA [Suspect]
     Indication: THROMBOSIS PROPHYLAXIS
     Dosage: 2.5MG PER DAY
     Route: 058
     Dates: start: 20080904, end: 20080912
  2. LORCAM [Concomitant]
     Dosage: 12MG PER DAY
     Route: 048
  3. MUCOSTA [Concomitant]
     Dosage: 300MG PER DAY
     Route: 048
  4. SERENACE [Concomitant]
     Dosage: 1.5MG PER DAY
     Route: 048
  5. DIAZEPAM [Concomitant]
     Dosage: 2MG THREE TIMES PER DAY
     Route: 048
  6. DASEN [Concomitant]
     Dosage: 15MG PER DAY
     Route: 048
     Dates: end: 20080910
  7. LENDORMIN [Concomitant]
     Dosage: .25MG PER DAY
     Route: 048

REACTIONS (1)
  - PLATELET COUNT INCREASED [None]
